FAERS Safety Report 16749690 (Version 7)
Quarter: 2019Q4

REPORT INFORMATION
  Report Type: Spontaneous
  Country: JP (occurrence: JP)
  Receive Date: 20190828
  Receipt Date: 20191224
  Transmission Date: 20200122
  Serious: Yes (Other)
  Sender: FDA-Public Use
  Company Number: JP-ASTELLAS-2019JP017689

PATIENT
  Age: 6 Year

DRUGS (4)
  1. XOSPATA [Suspect]
     Active Substance: GILTERITINIB
     Indication: ACUTE MYELOID LEUKAEMIA RECURRENT
     Route: 048
     Dates: start: 20190817
  2. XOSPATA [Suspect]
     Active Substance: GILTERITINIB
     Dosage: 20 MG (GIVEN 40 MG BY DIVIDED DOSE), ONCE DAILY
     Route: 048
     Dates: start: 20190827
  3. XOSPATA [Suspect]
     Active Substance: GILTERITINIB
     Route: 048
  4. XOSPATA [Suspect]
     Active Substance: GILTERITINIB
     Route: 048

REACTIONS (5)
  - Product administered to patient of inappropriate age [Unknown]
  - Melaena [Recovered/Resolved]
  - Bone marrow failure [Recovered/Resolved]
  - Blood alkaline phosphatase increased [Not Recovered/Not Resolved]
  - Off label use [Unknown]

NARRATIVE: CASE EVENT DATE: 201908
